FAERS Safety Report 12942182 (Version 6)
Quarter: 2017Q1

REPORT INFORMATION
  Report Type: Report from Study
  Country: US (occurrence: US)
  Receive Date: 20161114
  Receipt Date: 20170123
  Transmission Date: 20170428
  Serious: Yes (Other)
  Sender: FDA-Public Use
  Company Number: US-GILEAD-2016-0235442

PATIENT
  Age: 58 Year
  Sex: Male

DRUGS (6)
  1. HYDROMORPHONE [Concomitant]
     Active Substance: HYDROMORPHONE
     Dosage: UNK
     Dates: end: 201611
  2. RITUXAN [Concomitant]
     Active Substance: RITUXIMAB
  3. FLU [Concomitant]
     Active Substance: INFLUENZA VIRUS VACCINE
  4. MS CONTIN [Concomitant]
     Active Substance: MORPHINE SULFATE
     Dosage: UNK
     Dates: end: 201611
  5. IDELALISIB [Suspect]
     Active Substance: IDELALISIB
     Indication: CHRONIC LYMPHOCYTIC LEUKAEMIA
     Dosage: 150 MG, BID
     Route: 048
     Dates: start: 20160518
  6. FLUCONAZOLE. [Concomitant]
     Active Substance: FLUCONAZOLE

REACTIONS (30)
  - Hypoaesthesia [Not Recovered/Not Resolved]
  - Pain in jaw [Recovering/Resolving]
  - Weight increased [Unknown]
  - Therapeutic response unexpected [Unknown]
  - Increased tendency to bruise [Unknown]
  - Dyspnoea [Unknown]
  - Trismus [Unknown]
  - Arthralgia [Unknown]
  - Toxicity to various agents [Unknown]
  - Acute febrile neutrophilic dermatosis [Unknown]
  - Hypoaesthesia oral [Not Recovered/Not Resolved]
  - Toothache [Unknown]
  - Immune system disorder [Unknown]
  - Abdominal pain upper [Recovering/Resolving]
  - Hyperhidrosis [Unknown]
  - Initial insomnia [Unknown]
  - Cerebrovascular accident [Unknown]
  - Hypoaesthesia oral [Unknown]
  - Lymphadenopathy [Unknown]
  - Swelling face [Unknown]
  - Pain [Not Recovered/Not Resolved]
  - Nervousness [Unknown]
  - Wheezing [Unknown]
  - Chest discomfort [Unknown]
  - Headache [Unknown]
  - Bone pain [Unknown]
  - Decreased appetite [Unknown]
  - Neoplasm [Unknown]
  - Apathy [Unknown]
  - Lower respiratory tract infection [Unknown]

NARRATIVE: CASE EVENT DATE: 2016
